FAERS Safety Report 6029326-5 (Version None)
Quarter: 2009Q1

REPORT INFORMATION
  Report Type: 
  Country: None (occurrence: None)
  Receive Date: 20090102
  Receipt Date: 20081215
  Transmission Date: 20090719
  Serious: Yes (Hospitalization)
  Sender: FDA-Public Use
  Company Number: 2008-188531-NL

PATIENT
  Age: 36 Year
  Sex: Female
  Weight: 59 kg

DRUGS (4)
  1. NUVARING [Suspect]
     Dosage: 3 WEEKS IN/ 1 WEEK OUT
     Dates: start: 20031229, end: 20050101
  2. AMBIEN [Concomitant]
  3. FIORISET [Concomitant]
  4. ACETAMINOPHEN W/ CODEINE [Concomitant]

REACTIONS (8)
  - CHEST PAIN [None]
  - DEHYDRATION [None]
  - DYSPEPSIA [None]
  - MIGRAINE [None]
  - MYALGIA [None]
  - NAUSEA [None]
  - PULMONARY EMBOLISM [None]
  - VOMITING [None]
